FAERS Safety Report 23483312 (Version 1)
Quarter: 2024Q1

REPORT INFORMATION
  Report Type: Spontaneous
  Country: US (occurrence: None)
  Receive Date: 20240205
  Receipt Date: 20240205
  Transmission Date: 20240409
  Serious: Yes (Hospitalization)
  Sender: FDA-Public Use
  Company Number: None

PATIENT
  Age: 70 Year
  Sex: Female
  Weight: 81.65 kg

DRUGS (1)
  1. TREMFYA [Suspect]
     Active Substance: GUSELKUMAB
     Indication: Psoriasis
     Dosage: OTHER FREQUENCY : EVERY 8WEEKS;?
     Route: 058
     Dates: end: 20240201

REACTIONS (6)
  - Psoriasis [None]
  - Movement disorder [None]
  - Neck pain [None]
  - Migraine [None]
  - Hypertension [None]
  - Musculoskeletal stiffness [None]

NARRATIVE: CASE EVENT DATE: 20240115
